FAERS Safety Report 23015184 (Version 1)
Quarter: 2023Q4

REPORT INFORMATION
  Report Type: Spontaneous
  Country: US (occurrence: None)
  Receive Date: 20231002
  Receipt Date: 20231002
  Transmission Date: 20240110
  Serious: No
  Sender: FDA-Public Use
  Company Number: None

PATIENT
  Age: 61 Year
  Sex: Male

DRUGS (1)
  1. OTEZLA [Suspect]
     Active Substance: APREMILAST
     Dosage: FREQUENCY : TWICE A DAY;?
     Route: 048

REACTIONS (8)
  - Nephrolithiasis [None]
  - Cholelithiasis [None]
  - Fall [None]
  - Vision blurred [None]
  - Sinusitis [None]
  - Renal disorder [None]
  - Ventricular tachycardia [None]
  - Cerebral artery occlusion [None]

NARRATIVE: CASE EVENT DATE: 20230911
